FAERS Safety Report 23755564 (Version 1)
Quarter: 2024Q2

REPORT INFORMATION
  Report Type: Spontaneous
  Country: PT (occurrence: PT)
  Receive Date: 20240418
  Receipt Date: 20240418
  Transmission Date: 20240716
  Serious: Yes (Disabling, Other)
  Sender: FDA-Public Use
  Company Number: PT-INFARMED-E202404-72

PATIENT
  Age: 59 Year
  Sex: Male

DRUGS (3)
  1. AMOXICILLIN [Suspect]
     Active Substance: AMOXICILLIN
     Indication: Helicobacter infection
     Dosage: 2 GRAM, ONCE A DAY (1G DUAS VEZES POR DIA)
     Route: 048
     Dates: start: 20230805
  2. FLAGYL [Suspect]
     Active Substance: METRONIDAZOLE\METRONIDAZOLE HYDROCHLORIDE
     Indication: Helicobacter infection
     Dosage: UNK (8 COMPRIMIDOS DE 250 MG (2 G) NUMA S? TOMA)
     Route: 048
     Dates: start: 20230805
  3. CLARITHROMYCIN [Suspect]
     Active Substance: CLARITHROMYCIN
     Indication: Helicobacter infection
     Dosage: 500 MILLIGRAM (1 COMP. DE 12/12 HORAS)
     Route: 048
     Dates: start: 20230805

REACTIONS (1)
  - Impaired gastric emptying [Recovered/Resolved]

NARRATIVE: CASE EVENT DATE: 20230805
